FAERS Safety Report 8095767-8 (Version None)
Quarter: 2012Q1

REPORT INFORMATION
  Report Type: 
  Country: None (occurrence: None)
  Receive Date: 20120129
  Receipt Date: 20111223
  Transmission Date: 20120608
  Serious: No
  Sender: FDA-Public Use
  Company Number: US-ABBOTT-11P-163-0886885-00

PATIENT
  Sex: Female

DRUGS (4)
  1. DEXMETHYLTHENIDATE [Concomitant]
     Indication: ATTENTION DEFICIT/HYPERACTIVITY DISORDER
     Dosage: DAILY; AT THREE IN THE AFTERNOON
  2. HUMIRA [Suspect]
     Indication: ILL-DEFINED DISORDER
     Route: 062
     Dates: start: 20111223
  3. DEXMETHYLTHENIDATE [Concomitant]
     Dosage: DAILY; AT THREE IN THE AFTERNOON
  4. CLONIDINE [Concomitant]
     Indication: INSOMNIA
     Dosage: ONCE DAILY AT BEDTIME

REACTIONS (4)
  - ACCIDENTAL EXPOSURE [None]
  - PRURITUS [None]
  - SKIN BURNING SENSATION [None]
  - ERYTHEMA [None]
